FAERS Safety Report 5442394-4 (Version None)
Quarter: 2007Q3

REPORT INFORMATION
  Report Type: 
  Country: None (occurrence: None)
  Receive Date: 20070830
  Receipt Date: 20070824
  Transmission Date: 20080115
  Serious: Yes (Death)
  Sender: FDA-Public Use
  Company Number: 163-21880-07081538

PATIENT
  Age: 78 Year
  Sex: Female

DRUGS (1)
  1. REVLIMID [Suspect]
     Indication: MULTIPLE MYELOMA
     Dosage: 5 MG, 1 IN 1D, ORAL
     Route: 048
     Dates: start: 20070103, end: 20070803

REACTIONS (3)
  - DEEP VEIN THROMBOSIS [None]
  - HYPERCALCAEMIA [None]
  - RENAL FAILURE [None]
